FAERS Safety Report 16134350 (Version 1)
Quarter: 2019Q1

REPORT INFORMATION
  Report Type: Spontaneous
  Country: DE (occurrence: DE)
  Receive Date: 20190329
  Receipt Date: 20190329
  Transmission Date: 20190418
  Serious: Yes (Other)
  Sender: FDA-Public Use
  Company Number: DE-TEVA-2019-DE-1028596

PATIENT
  Sex: Male

DRUGS (5)
  1. VALSARTAN ABZ [Suspect]
     Active Substance: VALSARTAN
     Route: 065
  2. VALSARTAN ACTAVIS 40 MG [Suspect]
     Active Substance: VALSARTAN
     Route: 065
  3. VALSARTAN PUREN PHARMA GMBH [Suspect]
     Active Substance: VALSARTAN
     Route: 065
  4. VALSARTAN AUROBINDO [Suspect]
     Active Substance: VALSARTAN
     Route: 065
  5. VALSARTAN ZENTIVA GMBH [Suspect]
     Active Substance: VALSARTAN
     Route: 065

REACTIONS (2)
  - Metastases to liver [Unknown]
  - Rectosigmoid cancer metastatic [Unknown]
